FAERS Safety Report 16597679 (Version 1)
Quarter: 2019Q3

REPORT INFORMATION
  Report Type: Spontaneous
  Country: US (occurrence: US)
  Receive Date: 20190719
  Receipt Date: 20190719
  Transmission Date: 20191004
  Serious: No
  Sender: FDA-Public Use
  Company Number: US-GALDERMA-US19032242

PATIENT
  Sex: Female

DRUGS (1)
  1. DIFFERIN GEL [Suspect]
     Active Substance: ADAPALENE
     Indication: ACNE PUSTULAR
     Dosage: 0.1%
     Route: 061
     Dates: start: 20190515

REACTIONS (4)
  - Skin mass [Unknown]
  - Rash pustular [Unknown]
  - Scab [Unknown]
  - Acne cystic [Unknown]

NARRATIVE: CASE EVENT DATE: 201905
